FAERS Safety Report 9406441 (Version 2)
Quarter: 2013Q4

REPORT INFORMATION
  Report Type: Spontaneous
  Country: US (occurrence: US)
  Receive Date: 20130718
  Receipt Date: 20131203
  Transmission Date: 20140711
  Serious: No
  Sender: FDA-Public Use
  Company Number: US-009507513-1307USA006302

PATIENT
  Age: 33 Year
  Sex: Female

DRUGS (1)
  1. AZASITE [Suspect]
     Indication: INFECTION
     Dosage: 2 DROPS FOR 2 DAYS, THEN 1 DROP FOR 5 DAYS
     Route: 047
     Dates: start: 20130627

REACTIONS (3)
  - Drug dose omission [Unknown]
  - Product packaging quantity issue [Unknown]
  - No adverse event [Unknown]
